FAERS Safety Report 8160779-2 (Version None)
Quarter: 2012Q1

REPORT INFORMATION
  Report Type: 
  Country: None (occurrence: None)
  Receive Date: 20120223
  Receipt Date: 20120214
  Transmission Date: 20120608
  Serious: Yes (Hospitalization, Other)
  Sender: FDA-Public Use
  Company Number: PHHY2012FR012915

PATIENT
  Age: 74 Year
  Sex: Female

DRUGS (7)
  1. FRAGMIN [Suspect]
     Indication: PHLEBITIS
     Route: 058
     Dates: start: 20110501, end: 20110712
  2. ZOMETA [Suspect]
     Dosage: 4 MG, UNK
     Route: 042
     Dates: start: 20110401, end: 20110701
  3. THALIDOMIDE [Suspect]
     Indication: MULTIPLE MYELOMA
     Dosage: 50 MG, UNK
     Route: 048
     Dates: start: 20110425, end: 20110713
  4. PREDNISONE [Concomitant]
     Dates: end: 20110801
  5. MELPHALAN [Concomitant]
     Dates: end: 20110801
  6. ALKERAN [Concomitant]
     Indication: MULTIPLE MYELOMA
     Dates: start: 20110425
  7. PREDNISONE TAB [Concomitant]
     Indication: MULTIPLE MYELOMA
     Dates: start: 20110425

REACTIONS (6)
  - PHLEBITIS [None]
  - RASH GENERALISED [None]
  - SUBCUTANEOUS ABSCESS [None]
  - RASH MACULO-PAPULAR [None]
  - ERYSIPELAS [None]
  - TOXIC SKIN ERUPTION [None]
